FAERS Safety Report 15929325 (Version 4)
Quarter: 2021Q1

REPORT INFORMATION
  Report Type: Spontaneous
  Country: US (occurrence: US)
  Receive Date: 20190206
  Receipt Date: 20210312
  Transmission Date: 20210419
  Serious: Yes (Hospitalization)
  Sender: FDA-Public Use
  Company Number: US-GLAXOSMITHKLINE-US2019015714

PATIENT
  Age: 71 Year
  Sex: Female

DRUGS (2)
  1. NUCALA [Suspect]
     Active Substance: MEPOLIZUMAB
     Indication: DYSPNOEA
     Dosage: 100 MG, CYC, EVERY 4 WEEKS
     Route: 058
     Dates: start: 201810
  2. REMDESIVIR. [Suspect]
     Active Substance: REMDESIVIR
     Indication: PRODUCT USED FOR UNKNOWN INDICATION
     Dosage: UNK

REACTIONS (17)
  - Cardiac disorder [Unknown]
  - Asthenia [Not Recovered/Not Resolved]
  - Myalgia [Recovered/Resolved]
  - Dizziness [Recovered/Resolved]
  - Cognitive disorder [Unknown]
  - Gastric disorder [Unknown]
  - Coronavirus test positive [Unknown]
  - Condition aggravated [Unknown]
  - Lung disorder [Unknown]
  - Immune system disorder [Unknown]
  - Ill-defined disorder [Unknown]
  - Memory impairment [Unknown]
  - Adverse drug reaction [Unknown]
  - COVID-19 [Unknown]
  - Muscle spasms [Not Recovered/Not Resolved]
  - Dermatitis atopic [Unknown]
  - Muscle tightness [Unknown]

NARRATIVE: CASE EVENT DATE: 201810
